FAERS Safety Report 4881272-6 (Version None)
Quarter: 2005Q4

REPORT INFORMATION
  Report Type: 
  Country: None (occurrence: None)
  Receive Date: 20051212
  Receipt Date: 20050923
  Transmission Date: 20060501
  Serious: Yes (Other)
  Sender: FDA-Public Use
  Company Number: 2005-02027

PATIENT
  Age: 69 Year
  Sex: Male
  Weight: 79.8 kg

DRUGS (4)
  1. VELCADE [Suspect]
     Indication: MULTIPLE MYELOMA
     Dosage: 1.00 MG/M2, INTRAVENOUS
     Route: 042
  2. DEXAMETHASONE [Concomitant]
  3. METFORMIN HCL [Concomitant]
  4. METRONIDAZOLE [Concomitant]

REACTIONS (1)
  - STAPHYLOCOCCAL SEPSIS [None]
